FAERS Safety Report 7945197-1 (Version None)
Quarter: 2011Q4

REPORT INFORMATION
  Report Type: 
  Country: None (occurrence: None)
  Receive Date: 20111129
  Receipt Date: 20101102
  Transmission Date: 20120403
  Serious: No
  Sender: FDA-Public Use
  Company Number: US-GLAXOSMITHKLINE-A0890286A

PATIENT
  Age: 75 Year
  Sex: Female

DRUGS (3)
  1. FLOVENT [Suspect]
     Indication: PRODUCT USED FOR UNKNOWN INDICATION
     Dosage: 1PUFF PER DAY
     Route: 055
     Dates: start: 20101029
  2. BETA BLOCKER [Concomitant]
  3. ACE INHIBITOR [Concomitant]

REACTIONS (2)
  - RASH [None]
  - PRURITUS [None]
